FAERS Safety Report 24732169 (Version 1)
Quarter: 2024Q4

REPORT INFORMATION
  Report Type: Spontaneous
  Country: US (occurrence: US)
  Receive Date: 20241213
  Receipt Date: 20241213
  Transmission Date: 20250115
  Serious: No
  Sender: SUNSHINE LAKE PHARMA
  Company Number: US-Sunshine Lake Pharma Co, Ltd.-2167038

PATIENT
  Age: 77 Year
  Sex: Female

DRUGS (8)
  1. CLARITHROMYCIN [Suspect]
     Active Substance: CLARITHROMYCIN
     Indication: Atypical pneumonia
  2. COZAAR [Concomitant]
     Active Substance: LOSARTAN POTASSIUM
  3. ALPRAZOLAM [Concomitant]
     Active Substance: ALPRAZOLAM
  4. LOSARTAN [Concomitant]
     Active Substance: LOSARTAN
  5. LEVOTHYROXINE [Concomitant]
     Active Substance: LEVOTHYROXINE
  6. regular allergy shot [Concomitant]
  7. fasenra shot [Concomitant]
  8. Wixela, fluticasone propionate [Concomitant]

REACTIONS (1)
  - Tinnitus [Not Recovered/Not Resolved]

NARRATIVE: CASE EVENT DATE: 20241209
